FAERS Safety Report 4369510-X (Version None)
Quarter: 2004Q2

REPORT INFORMATION
  Report Type: 
  Country: None (occurrence: None)
  Receive Date: 20040527
  Receipt Date: 20040524
  Transmission Date: 20050107
  Serious: Yes (Other)
  Sender: FDA-Public Use
  Company Number: KII-1999-0000817

PATIENT
  Age: 74 Year
  Sex: Female

DRUGS (6)
  1. OXYCONTIN [Suspect]
     Indication: PAIN
     Dosage: SEE IMAGE
  2. OXYCODONE HCL [Suspect]
     Indication: PAIN
     Dosage: 2 ML, SEE TEXT
  3. BENADRYL [Suspect]
     Dosage: RECTAL
     Route: 054
  4. ATIVAN [Suspect]
     Dosage: RECTAL
     Route: 054
  5. HALDOL [Suspect]
     Dosage: RECTAL
     Route: 054
  6. RESTORIL [Suspect]
     Dosage: RECTAL
     Route: 054

REACTIONS (10)
  - ABDOMINAL PAIN [None]
  - ASTHENIA [None]
  - CHEST PAIN [None]
  - CONDITION AGGRAVATED [None]
  - CONFUSIONAL STATE [None]
  - DEHYDRATION [None]
  - DYSPNOEA [None]
  - HYPOTENSION [None]
  - LETHARGY [None]
  - NEOPLASM MALIGNANT [None]
